FAERS Safety Report 8165643-0 (Version None)
Quarter: 2012Q1

REPORT INFORMATION
  Report Type: 
  Country: None (occurrence: None)
  Receive Date: 20120103
  Receipt Date: 20111019
  Transmission Date: 20120608
  Serious: No
  Sender: FDA-Public Use
  Company Number: AE-2011-002478

PATIENT
  Age: 57 Year
  Sex: Male
  Weight: 79.8331 kg

DRUGS (5)
  1. CITALOPRAM HYDROBROMIDE [Concomitant]
  2. RIBAVIRIN [Concomitant]
  3. INCIVEK [Suspect]
     Dosage: (3 IN 1 D), ORAL
     Route: 048
     Dates: start: 20111011
  4. LOTREL [Concomitant]
  5. PSGASYS (PEGINTERFERON ALFA-2A) [Concomitant]

REACTIONS (3)
  - IRRITABILITY [None]
  - PROCTALGIA [None]
  - FREQUENT BOWEL MOVEMENTS [None]
